FAERS Safety Report 9160211 (Version 1)
Quarter: 2013Q1

REPORT INFORMATION
  Report Type: Spontaneous
  Country: US (occurrence: US)
  Receive Date: 20130313
  Receipt Date: 20130313
  Transmission Date: 20140127
  Serious: No
  Sender: FDA-Public Use
  Company Number: US-ASTRAZENECA-2013SE14751

PATIENT
  Age: 5 Year
  Sex: Male

DRUGS (4)
  1. SYMBICORT [Suspect]
     Indication: ASTHMA
     Dosage: 320 MCG, FREQUENCY TWO TIMES A DAY AS REQUIRED
     Route: 055
  2. SYMBICORT [Suspect]
     Indication: ASTHMA
     Dosage: 320 MCG, FREQUENCY DAILY
     Route: 055
     Dates: start: 2010
  3. SINGULAIR [Concomitant]
     Dosage: DAILY
  4. NASONEX [Concomitant]
     Dosage: DAILY

REACTIONS (3)
  - Condition aggravated [Unknown]
  - Cough [Unknown]
  - Intentional drug misuse [Unknown]
